FAERS Safety Report 9533679 (Version 1)
Quarter: 2013Q3

REPORT INFORMATION
  Report Type: Spontaneous
  Country: US (occurrence: US)
  Receive Date: 20130918
  Receipt Date: 20130918
  Transmission Date: 20140515
  Serious: Yes (Other)
  Sender: FDA-Public Use
  Company Number: US-JNJFOC-20130905919

PATIENT
  Age: 33 Year
  Sex: Female
  Weight: 142.88 kg

DRUGS (30)
  1. DOXORUBICIN HYDROCHLORIDE (DOXIL) [Suspect]
     Indication: DESMOID TUMOUR
     Route: 042
     Dates: start: 201308
  2. DOXORUBICIN HYDROCHLORIDE (DOXIL) [Suspect]
     Indication: DESMOID TUMOUR
     Route: 042
     Dates: start: 201306, end: 201308
  3. EFFEXOR [Concomitant]
     Indication: DEPRESSION
     Route: 048
     Dates: start: 2008
  4. NEURONTIN [Concomitant]
     Indication: NEURALGIA
     Route: 048
     Dates: start: 2007
  5. NEURONTIN [Concomitant]
     Indication: NEURALGIA
     Route: 048
     Dates: start: 2007
  6. AMBIEN [Concomitant]
     Indication: SLEEP DISORDER
     Route: 048
     Dates: start: 2007
  7. SEROQUEL [Concomitant]
     Indication: SLEEP DISORDER
     Route: 048
     Dates: start: 201308
  8. ALLEGRA [Concomitant]
     Indication: MULTIPLE ALLERGIES
     Route: 048
     Dates: start: 2007
  9. SYNTHROID [Concomitant]
     Indication: THYROID DISORDER
     Route: 048
     Dates: start: 2003
  10. SINGULAIR [Concomitant]
     Indication: MULTIPLE ALLERGIES
     Route: 048
     Dates: start: 2011
  11. CLONIDINE [Concomitant]
     Indication: ANXIETY
     Route: 048
     Dates: start: 201308
  12. VITAMIN B12 [Concomitant]
     Indication: MALABSORPTION
     Route: 058
  13. CALCIUM [Concomitant]
     Indication: HYPOCALCAEMIA
     Route: 058
     Dates: start: 2003
  14. CALCITRIOL [Concomitant]
     Indication: HYPOPARATHYROIDISM
     Route: 048
     Dates: start: 2003
  15. PREVACID [Concomitant]
     Indication: GASTROOESOPHAGEAL REFLUX DISEASE
     Route: 048
     Dates: start: 2003
  16. ZOFRAN [Concomitant]
     Indication: NAUSEA
     Route: 048
     Dates: start: 2008
  17. VENTOLIN [Concomitant]
     Indication: MULTIPLE ALLERGIES
     Route: 055
     Dates: start: 1998
  18. LEVSIN [Concomitant]
     Indication: GASTRIC DISORDER
     Route: 048
     Dates: start: 2009
  19. SKELAXIN [Concomitant]
     Indication: MUSCLE SPASMS
     Route: 048
     Dates: start: 2009
  20. DIFLUCAN [Concomitant]
     Indication: SKIN INFECTION
     Route: 048
     Dates: start: 2011
  21. DIFLUCAN [Concomitant]
     Indication: SKIN INFECTION
     Route: 048
     Dates: start: 2011
  22. DEPOPROVERA [Concomitant]
     Indication: CONTRACEPTION
     Route: 065
     Dates: start: 201306
  23. LIDOCAINE [Concomitant]
     Indication: ENTEROSTOMY
     Route: 065
     Dates: start: 2011
  24. OXYCODONE [Concomitant]
     Indication: PAIN
     Route: 048
     Dates: start: 201306
  25. METHADONE [Concomitant]
     Indication: PAIN
     Route: 048
     Dates: start: 201308
  26. METHADONE [Concomitant]
     Indication: PAIN
     Route: 048
     Dates: start: 201308
  27. FENTANYL [Concomitant]
     Indication: PAIN
     Route: 062
     Dates: end: 201308
  28. MARINOL [Concomitant]
     Indication: NAUSEA
     Route: 048
     Dates: start: 201308
  29. NEURONTIN [Concomitant]
     Indication: NEURALGIA
     Route: 048
     Dates: start: 2007
  30. BENADRYL [Concomitant]
     Indication: PRURITUS
     Route: 065

REACTIONS (7)
  - Pneumonia [Recovered/Resolved]
  - Palmar-plantar erythrodysaesthesia syndrome [Not Recovered/Not Resolved]
  - Rash [Not Recovered/Not Resolved]
  - Stoma site ulcer [Not Recovered/Not Resolved]
  - Mucosal inflammation [Recovered/Resolved]
  - Nausea [Recovered/Resolved]
  - Off label use [Unknown]
